FAERS Safety Report 23546750 (Version 1)
Quarter: 2024Q1

REPORT INFORMATION
  Report Type: Spontaneous
  Country: BG (occurrence: BG)
  Receive Date: 20240221
  Receipt Date: 20240221
  Transmission Date: 20240409
  Serious: Yes (Hospitalization, Other)
  Sender: FDA-Public Use
  Company Number: BG-MLMSERVICE-20240202-4815506-2

PATIENT

DRUGS (3)
  1. HYDROCHLOROTHIAZIDE [Suspect]
     Active Substance: HYDROCHLOROTHIAZIDE
     Indication: Hypertension
     Dosage: 1 DOSAGE FORM
     Route: 065
     Dates: start: 2018
  2. HYDROCHLOROTHIAZIDE\NEBIVOLOL HYDROCHLORIDE [Suspect]
     Active Substance: HYDROCHLOROTHIAZIDE\NEBIVOLOL HYDROCHLORIDE
     Indication: Hypertension
     Dosage: 5MILLIGRAM/12.5 MILLIGRAM
     Route: 065
     Dates: start: 2018
  3. LERCANIDIPINE HYDROCHLORIDE [Suspect]
     Active Substance: LERCANIDIPINE HYDROCHLORIDE
     Indication: Hypertension
     Dosage: 10 MILLIGRAM, BID
     Route: 065
     Dates: start: 2018

REACTIONS (5)
  - Metastases to lung [Unknown]
  - Metastases to liver [Unknown]
  - Metastatic malignant melanoma [Unknown]
  - Metastases to spine [Unknown]
  - Manufacturing materials contamination [Unknown]

NARRATIVE: CASE EVENT DATE: 20210101
